FAERS Safety Report 4299921-2 (Version None)
Quarter: 2004Q1

REPORT INFORMATION
  Report Type: 
  Country: None (occurrence: None)
  Receive Date: 20040220
  Receipt Date: 20030918
  Transmission Date: 20041129
  Serious: Yes (Death, Hospitalization, Other)
  Sender: FDA-Public Use
  Company Number: 200318319US

PATIENT
  Sex: Female
  Weight: 54.5 kg

DRUGS (9)
  1. TAXOTERE [Suspect]
     Indication: BREAST CANCER METASTATIC
     Route: 042
     Dates: start: 20030728, end: 20030728
  2. ADRIAMYCIN PFS [Concomitant]
     Indication: BREAST CANCER METASTATIC
     Dates: start: 20030728, end: 20030728
  3. CYTOXAN [Concomitant]
     Indication: BREAST CANCER METASTATIC
     Dates: start: 20030728, end: 20030728
  4. LIPITOR [Concomitant]
     Dosage: DOSE: UNK
  5. ANZEMET [Concomitant]
     Dates: start: 20030728, end: 20030728
  6. HEXADROL [Concomitant]
     Dates: start: 20030728, end: 20030728
  7. SODIUM CHLORIDE 0.9% [Concomitant]
  8. ANTIHYPERTENSIVES [Concomitant]
     Dosage: DOSE: UNK
  9. TAMOXIFEN [Concomitant]

REACTIONS (19)
  - ABDOMINAL DISTENSION [None]
  - APNOEA [None]
  - ASTHENIA [None]
  - BLOOD PRESSURE DECREASED [None]
  - CHILLS [None]
  - DIARRHOEA [None]
  - HAEMATOCRIT DECREASED [None]
  - HAEMORRHAGE [None]
  - HYPOKALAEMIA [None]
  - ILEUS [None]
  - MULTI-ORGAN FAILURE [None]
  - NAUSEA [None]
  - NEUTROPENIA [None]
  - PLATELET COUNT DECREASED [None]
  - PNEUMONIA ASPERGILLUS [None]
  - PNEUMONIA FUNGAL [None]
  - RESPIRATORY ARREST [None]
  - VOMITING [None]
  - WHITE BLOOD CELL COUNT DECREASED [None]
